FAERS Safety Report 5742335-6 (Version None)
Quarter: 2008Q2

REPORT INFORMATION
  Report Type: 
  Country: None (occurrence: None)
  Receive Date: 20080514
  Receipt Date: 20070419
  Transmission Date: 20081010
  Serious: Yes (Hospitalization)
  Sender: FDA-Public Use
  Company Number: WAES 0509USA01103

PATIENT
  Age: 24 Year
  Sex: Male
  Weight: 113.3993 kg

DRUGS (5)
  1. CRIXIVAN [Suspect]
     Indication: PROPHYLAXIS AGAINST HIV INFECTION
     Dosage: 800 MG/TID/PO
     Route: 048
     Dates: start: 19980318, end: 19980415
  2. CLINDAMYCIN HYDROCHLORIDE [Suspect]
     Indication: CELLULITIS STAPHYLOCOCCAL
     Dosage: 900 MG/Q8H/IV
     Route: 042
     Dates: start: 20041013, end: 20041110
  3. EPIVIR [Concomitant]
  4. RITONAVIR [Concomitant]
  5. ZIDOVUDINE [Concomitant]

REACTIONS (15)
  - ABDOMINAL PAIN LOWER [None]
  - ABDOMINAL PAIN UPPER [None]
  - BONE NEOPLASM [None]
  - CELLULITIS STAPHYLOCOCCAL [None]
  - CLAVICLE FRACTURE [None]
  - COUGH [None]
  - DIABETES MELLITUS [None]
  - MALAISE [None]
  - NAUSEA [None]
  - RASH MACULO-PAPULAR [None]
  - RIB FRACTURE [None]
  - ROAD TRAFFIC ACCIDENT [None]
  - STRESS [None]
  - THYROID DISORDER [None]
  - TOOTH ABSCESS [None]
